FAERS Safety Report 21073952 (Version 1)
Quarter: 2022Q3

REPORT INFORMATION
  Report Type: Spontaneous
  Country: DE (occurrence: None)
  Receive Date: 20220713
  Receipt Date: 20220713
  Transmission Date: 20221027
  Serious: Yes (Life-Threatening, Hospitalization)
  Sender: FDA-Public Use
  Company Number: DE-ROCHE-3136230

PATIENT
  Age: 60 Year
  Sex: Male

DRUGS (8)
  1. CLONAZEPAM [Suspect]
     Active Substance: CLONAZEPAM
     Indication: Intentional overdose
     Dosage: 1 TOTAL (2 BLISTER PACKS 12 TAB OF CLONAEPAM)
     Route: 048
     Dates: start: 20220530, end: 20220530
  2. QUETIAPINE [Suspect]
     Active Substance: QUETIAPINE
     Indication: Intentional overdose
     Dosage: 1 TOTAL (1 BLISTER PACK OF 12 TABLETS OF QUETIAPINE.)
     Route: 048
     Dates: start: 20220530, end: 20220530
  3. SINEMET [Suspect]
     Active Substance: CARBIDOPA\LEVODOPA
     Indication: Intentional overdose
     Dosage: 1 TOTAL (1 BLISTER PACK OF 12 TABLETS)- SINEMET 25 MG/250 MG TABLETS, 60 TABLETS
     Route: 048
     Dates: start: 20220530, end: 20220530
  4. FOLIC ACID [Concomitant]
     Active Substance: FOLIC ACID
  5. LOSARTAN [Concomitant]
     Active Substance: LOSARTAN
  6. DOMPERIDONE [Concomitant]
     Active Substance: DOMPERIDONE
  7. TAMSULOSIN [Concomitant]
     Active Substance: TAMSULOSIN
  8. ZELDOX [Concomitant]
     Active Substance: ZIPRASIDONE

REACTIONS (1)
  - Depressed level of consciousness [Recovered/Resolved]

NARRATIVE: CASE EVENT DATE: 20220530
